FAERS Safety Report 22684558 (Version 4)
Quarter: 2023Q4

REPORT INFORMATION
  Report Type: Other
  Country: CA (occurrence: None)
  Receive Date: 20230710
  Receipt Date: 20231020
  Transmission Date: 20240110
  Serious: Yes (Hospitalization)
  Sender: FDA-Public Use
  Company Number: CA-ROCHE-3382320

PATIENT
  Sex: Female

DRUGS (1)
  1. ENSPRYNG [Suspect]
     Active Substance: SATRALIZUMAB-MWGE
     Indication: Neuromyelitis optica spectrum disorder
     Dosage: 120 MG AT WEEKS 0, 2, AND 4 THEN EVERY 4 WEEKS.
     Route: 058
     Dates: start: 20201203

REACTIONS (1)
  - Kidney infection [Unknown]
